FAERS Safety Report 9750190 (Version 1)
Quarter: 2013Q4

REPORT INFORMATION
  Report Type: Spontaneous
  Country: US (occurrence: US)
  Receive Date: 20131212
  Receipt Date: 20131212
  Transmission Date: 20140711
  Serious: Yes (Hospitalization)
  Sender: FDA-Public Use
  Company Number: US-GLAXOSMITHKLINE-A1052482A

PATIENT
  Age: 64 Year
  Sex: Male

DRUGS (5)
  1. ADVAIR [Suspect]
     Indication: CHRONIC OBSTRUCTIVE PULMONARY DISEASE
     Dosage: 1PUFF TWICE PER DAY
     Route: 055
     Dates: start: 201012
  2. SIMVASTATIN [Concomitant]
  3. LOSARTAN [Concomitant]
  4. OMEPRAZOLE [Concomitant]
  5. ASPIRIN [Concomitant]

REACTIONS (6)
  - Pancreatitis [Unknown]
  - Chronic obstructive pulmonary disease [Unknown]
  - Dyspnoea [Unknown]
  - Hyperhidrosis [Unknown]
  - Dyspnoea [Unknown]
  - White blood cell count increased [Unknown]
